FAERS Safety Report 5755352-7 (Version None)
Quarter: 2008Q2

REPORT INFORMATION
  Report Type: 
  Country: None (occurrence: None)
  Receive Date: 20080529
  Receipt Date: 20080529
  Transmission Date: 20081010
  Serious: No
  Sender: FDA-Public Use
  Company Number: None

PATIENT
  Sex: Male
  Weight: 22.6799 kg

DRUGS (1)
  1. SINGULAIR [Suspect]
     Indication: SEASONAL ALLERGY
     Dosage: 5 MG ONCE DAILY PO
     Route: 048
     Dates: start: 20040801, end: 20070629

REACTIONS (7)
  - CONTUSION [None]
  - DEPRESSED MOOD [None]
  - EXCORIATION [None]
  - HEAD BANGING [None]
  - IMMUNE SYSTEM DISORDER [None]
  - INTENTIONAL SELF-INJURY [None]
  - NIGHTMARE [None]
